FAERS Safety Report 8014037-7 (Version None)
Quarter: 2011Q4

REPORT INFORMATION
  Report Type: 
  Country: None (occurrence: None)
  Receive Date: 20111229
  Receipt Date: 20111221
  Transmission Date: 20120403
  Serious: Yes (Other)
  Sender: FDA-Public Use
  Company Number: US-BAYER-201038659NA

PATIENT
  Age: 29 Year
  Sex: Female
  Weight: 104.31 kg

DRUGS (9)
  1. THYROID PREPARATIONS [Concomitant]
     Route: 048
  2. PRILOSEC [Concomitant]
     Indication: GASTROOESOPHAGEAL REFLUX DISEASE
     Dosage: 20 MG, UNK
     Route: 048
     Dates: start: 20060323
  3. WELLBUTRIN SR [Concomitant]
     Indication: DEPRESSION
  4. MULTI-VITAMIN [Concomitant]
  5. STRATTERA [Concomitant]
     Indication: ATTENTION DEFICIT/HYPERACTIVITY DISORDER
     Dosage: UNK UNK, QD
     Route: 048
     Dates: start: 20060301
  6. YASMIN [Suspect]
     Dosage: UNK
     Route: 048
     Dates: start: 20050901, end: 20060101
  7. WELLBUTRIN SR [Concomitant]
     Indication: ANXIETY
     Dosage: 150 MG, BID
     Route: 048
     Dates: start: 20060301
  8. NEXIUM [Concomitant]
     Indication: GASTROOESOPHAGEAL REFLUX DISEASE
     Dosage: UNK
     Route: 048
     Dates: start: 20060317
  9. IBUPROFEN [Concomitant]

REACTIONS (5)
  - THROMBOPHLEBITIS SUPERFICIAL [None]
  - OEDEMA [None]
  - THROMBOSIS [None]
  - CHEST PAIN [None]
  - DEEP VEIN THROMBOSIS [None]
